FAERS Safety Report 9283662 (Version 1)
Quarter: 2013Q2

REPORT INFORMATION
  Report Type: Spontaneous
  Country: US (occurrence: None)
  Receive Date: 20130508
  Receipt Date: 20130508
  Transmission Date: 20140414
  Serious: Yes (Death)
  Sender: FDA-Public Use
  Company Number: 2013P1005333

PATIENT
  Age: 59 Year
  Sex: Male
  Weight: 70.31 kg

DRUGS (6)
  1. RILUTEK [Suspect]
     Indication: AMYOTROPHIC LATERAL SCLEROSIS
     Dosage: 50 MG; BID; PO
     Route: 048
     Dates: start: 201207, end: 20130221
  2. LORTAB [Concomitant]
  3. BACLOFEN [Concomitant]
  4. CITALOPRAM [Concomitant]
  5. GUAIFENESIN [Concomitant]
  6. ALEVE [Concomitant]

REACTIONS (1)
  - Respiratory disorder [None]
